FAERS Safety Report 11080666 (Version 3)
Quarter: 2015Q3

REPORT INFORMATION
  Report Type: Spontaneous
  Country: JP (occurrence: JP)
  Receive Date: 20150501
  Receipt Date: 20150706
  Transmission Date: 20151125
  Serious: Yes (Other)
  Sender: FDA-Public Use
  Company Number: JP-ELI_LILLY_AND_COMPANY-JP201504007225

PATIENT
  Age: 43 Year
  Sex: Female
  Weight: 105 kg

DRUGS (8)
  1. HANGEKOBOKUTO                      /07984801/ [Concomitant]
     Indication: ANXIETY DISORDER
     Dosage: UNK
     Route: 048
     Dates: start: 20140526
  2. ACTOS [Concomitant]
     Active Substance: PIOGLITAZONE HYDROCHLORIDE
     Indication: POLYCYSTIC OVARIES
     Dosage: 15 MG, EACH MORNING
     Route: 048
  3. PREMARIN [Concomitant]
     Active Substance: ESTROGENS, CONJUGATED
     Indication: PREMENSTRUAL SYNDROME
     Dosage: 0.625 MG, BID
     Route: 048
  4. LEXAPRO [Suspect]
     Active Substance: ESCITALOPRAM OXALATE
     Indication: DEPRESSION
     Dosage: UNK
     Route: 048
     Dates: start: 20140526
  5. DUPHASTON [Concomitant]
     Active Substance: DYDROGESTERONE
     Indication: PREMENSTRUAL SYNDROME
     Dosage: 5 MG, BID
     Route: 048
  6. DEPAS [Concomitant]
     Active Substance: ETIZOLAM
     Indication: ANXIETY
     Dosage: 1 MG, PRN
     Route: 048
  7. CYMBALTA [Suspect]
     Active Substance: DULOXETINE HYDROCHLORIDE
     Indication: DEPRESSION
     Dosage: 60 MG, QD
     Route: 048
     Dates: start: 20140526, end: 20150508
  8. SOLANAX [Suspect]
     Active Substance: ALPRAZOLAM
     Indication: ANXIETY
     Dosage: UNK
     Route: 048
     Dates: start: 20140526

REACTIONS (5)
  - Thirst [Unknown]
  - Hyperglycaemia [Unknown]
  - Polyuria [Unknown]
  - Glycosylated haemoglobin increased [Unknown]
  - Polydipsia [Unknown]

NARRATIVE: CASE EVENT DATE: 201503
